FAERS Safety Report 5647285-1 (Version None)
Quarter: 2008Q1

REPORT INFORMATION
  Report Type: 
  Country: None (occurrence: None)
  Receive Date: 20080131
  Receipt Date: 20071204
  Transmission Date: 20080703
  Serious: No
  Sender: FDA-Public Use
  Company Number: 163-21880-07120185

PATIENT
  Age: 81 Year
  Sex: Female

DRUGS (2)
  1. REVLIMID [Suspect]
     Indication: MULTIPLE MYELOMA
     Dosage: 10 MG, DAILY X21 DAYS, ORAL ; 25 MG, DAILY X21 DAYS, ORAL
     Route: 048
     Dates: start: 20070701, end: 20070901
  2. REVLIMID [Suspect]
     Indication: MULTIPLE MYELOMA
     Dosage: 10 MG, DAILY X21 DAYS, ORAL ; 25 MG, DAILY X21 DAYS, ORAL
     Route: 048
     Dates: start: 20071001

REACTIONS (1)
  - CONTUSION [None]
